FAERS Safety Report 5400414-7 (Version None)
Quarter: 2007Q3

REPORT INFORMATION
  Report Type: 
  Country: None (occurrence: None)
  Receive Date: 20070730
  Receipt Date: 20070718
  Transmission Date: 20080115
  Serious: Yes (Hospitalization, Other)
  Sender: FDA-Public Use
  Company Number: B0480618A

PATIENT
  Age: 64 Year
  Sex: Female
  Weight: 64 kg

DRUGS (15)
  1. ONDANSETRON [Suspect]
     Indication: DRUG USE FOR UNKNOWN INDICATION
     Dosage: 8MG TWICE PER DAY
     Route: 048
     Dates: start: 20070531, end: 20070531
  2. ONDANSETRON [Suspect]
     Dosage: 8MG SINGLE DOSE
     Route: 042
     Dates: start: 20070601, end: 20070604
  3. DEXAMETHASONE [Concomitant]
     Dosage: 2MG THREE TIMES PER DAY
     Route: 048
     Dates: start: 20070531, end: 20070604
  4. DIAZEPAM [Concomitant]
     Dosage: 2MG PER DAY
     Route: 048
     Dates: start: 20070531, end: 20070602
  5. DOMPERIDONE [Concomitant]
     Dosage: 20MG SEE DOSAGE TEXT
     Route: 048
     Dates: start: 20070601, end: 20070604
  6. FLUOROURACIL [Concomitant]
     Indication: CHEMOTHERAPY
  7. FOLINIC ACID [Concomitant]
     Indication: CHEMOTHERAPY
  8. LACTULOSE [Concomitant]
     Route: 048
  9. LOPERAMIDE HCL [Concomitant]
     Dosage: 2MG AS REQUIRED
     Route: 048
     Dates: start: 20070601
  10. LOSARTAN POTASSIUM [Concomitant]
     Route: 048
     Dates: end: 20070607
  11. OXALIPLATIN [Concomitant]
     Indication: CHEMOTHERAPY
  12. TRAMADOL HCL [Concomitant]
     Route: 048
  13. UNKNOWN NAME [Concomitant]
     Dosage: 1MG PER DAY
     Route: 048
     Dates: start: 20070601, end: 20070602
  14. LORAZEPAM [Concomitant]
     Route: 048
     Dates: start: 20070531, end: 20070531
  15. UNKNOWN NAME [Concomitant]
     Dosage: 5000IU PER DAY
     Route: 058
     Dates: start: 20070604

REACTIONS (1)
  - TORSADE DE POINTES [None]
